FAERS Safety Report 4424253-9 (Version None)
Quarter: 2004Q3

REPORT INFORMATION
  Report Type: 
  Country: None (occurrence: None)
  Receive Date: 20040715
  Receipt Date: 20040507
  Transmission Date: 20050211
  Serious: Yes (Hospitalization)
  Sender: FDA-Public Use
  Company Number: 2004212483US

PATIENT
  Age: 48 Year
  Sex: Female

DRUGS (7)
  1. CELEBREX [Suspect]
     Indication: ARTHRITIS
     Dosage: 200 MG, QD,
  2. NORVASC [Concomitant]
  3. GLUCOPHAGE [Concomitant]
  4. DARVOCET-N 100 [Concomitant]
  5. IBUPROFEN [Concomitant]
  6. MULTIVITAMIN [Concomitant]
  7. UNIRETIC [Concomitant]

REACTIONS (3)
  - DIVERTICULITIS [None]
  - DYSPEPSIA [None]
  - HAEMATOCHEZIA [None]
